FAERS Safety Report 5029689-3 (Version None)
Quarter: 2006Q2

REPORT INFORMATION
  Report Type: 
  Country: None (occurrence: None)
  Receive Date: 20060620
  Receipt Date: 20060614
  Transmission Date: 20061013
  Serious: Yes (Hospitalization)
  Sender: FDA-Public Use
  Company Number: FR-AVENTIS-200612153FR

PATIENT
  Age: 37 Year
  Sex: Female
  Weight: 62 kg

DRUGS (9)
  1. RULID [Suspect]
     Indication: GASTROENTERITIS
     Route: 048
     Dates: start: 20060405, end: 20060411
  2. RULID [Suspect]
     Indication: NASOPHARYNGITIS
     Route: 048
     Dates: start: 20060405, end: 20060411
  3. LASILIX [Suspect]
     Route: 048
     Dates: start: 20060405, end: 20060408
  4. PROGRAF [Concomitant]
  5. MONO-TILDIEM [Concomitant]
  6. ROCALTROL [Concomitant]
  7. CALCIDIA [Concomitant]
  8. DUPHASTON [Concomitant]
  9. MOPRAL [Concomitant]

REACTIONS (2)
  - NEPHRITIS INTERSTITIAL [None]
  - RENAL FAILURE ACUTE [None]
